FAERS Safety Report 20297712 (Version 1)
Quarter: 2022Q1

REPORT INFORMATION
  Report Type: Spontaneous
  Country: US (occurrence: None)
  Receive Date: 20220105
  Receipt Date: 20220105
  Transmission Date: 20220423
  Serious: No
  Sender: FDA-Public Use
  Company Number: US-ROCHE-2717669

PATIENT
  Age: 73 Year
  Sex: Male

DRUGS (2)
  1. ACTIVASE [Suspect]
     Active Substance: ALTEPLASE
     Indication: COVID-19
     Dosage: 25MG IN 50 ML OF NSS OVER 2 HOURS, THEN 25 MG OVER 22 HOURS ;ONGOING: NO
     Route: 042
     Dates: start: 20201116, end: 20201117
  2. HEPARIN [Concomitant]
     Active Substance: HEPARIN SODIUM
     Indication: COVID-19
     Route: 040
     Dates: start: 20201117, end: 20201117

REACTIONS (3)
  - Intentional product use issue [Unknown]
  - Off label use [Unknown]
  - No adverse event [Unknown]

NARRATIVE: CASE EVENT DATE: 20201116
